FAERS Safety Report 14519511 (Version 1)
Quarter: 2018Q1

REPORT INFORMATION
  Report Type: Spontaneous
  Country: US (occurrence: US)
  Receive Date: 20180209
  Receipt Date: 20180209
  Transmission Date: 20180509
  Serious: Yes (Disabling, Other)
  Sender: FDA-Public Use
  Company Number: None

PATIENT
  Age: 34 Year
  Sex: Female
  Weight: 97.65 kg

DRUGS (1)
  1. CIMZIA [Suspect]
     Active Substance: CERTOLIZUMAB PEGOL
     Indication: RHEUMATOID ARTHRITIS
     Dosage: ?          QUANTITY:1 INJECTION(S);OTHER FREQUENCY:BIWEEKLY;?
     Route: 058
     Dates: start: 20180208, end: 20180208

REACTIONS (15)
  - Dizziness [None]
  - Muscle spasticity [None]
  - Muscle rigidity [None]
  - Dysgeusia [None]
  - Anger [None]
  - Palpitations [None]
  - Hot flush [None]
  - Tongue biting [None]
  - Visual impairment [None]
  - Discomfort [None]
  - Feeling abnormal [None]
  - Dissociation [None]
  - Aphasia [None]
  - Feeling hot [None]
  - Neurological symptom [None]

NARRATIVE: CASE EVENT DATE: 20180209
